FAERS Safety Report 7719129-5 (Version None)
Quarter: 2011Q3

REPORT INFORMATION
  Report Type: 
  Country: None (occurrence: None)
  Receive Date: 20110830
  Receipt Date: 20110823
  Transmission Date: 20111222
  Serious: Yes (Other)
  Sender: FDA-Public Use
  Company Number: US-BAXTER-2011BH027659

PATIENT
  Sex: Male

DRUGS (4)
  1. DIPYRIDAMOLE [Concomitant]
     Indication: MATERNAL EXPOSURE DURING PREGNANCY
     Route: 064
  2. HEPARIN SODIUM INJECTION [Suspect]
     Indication: MATERNAL EXPOSURE DURING PREGNANCY
     Route: 064
  3. WARFARIN SODIUM [Concomitant]
     Indication: MATERNAL EXPOSURE DURING PREGNANCY
     Route: 064
  4. ASPIRIN [Concomitant]
     Indication: MATERNAL EXPOSURE DURING PREGNANCY
     Route: 064

REACTIONS (2)
  - PREMATURE BABY [None]
  - MATERNAL EXPOSURE DURING PREGNANCY [None]
